FAERS Safety Report 4675257-2 (Version None)
Quarter: 2005Q2

REPORT INFORMATION
  Report Type: 
  Country: None (occurrence: None)
  Receive Date: 20050527
  Receipt Date: 20050509
  Transmission Date: 20051028
  Serious: Yes (Death, Hospitalization, Other)
  Sender: FDA-Public Use
  Company Number: PHBS2005PE06490

PATIENT
  Age: 63 Year
  Sex: Male

DRUGS (4)
  1. ZOMETA [Suspect]
     Indication: METASTASES TO BONE
     Dosage: 4 MG, QMO
     Route: 042
     Dates: start: 20050301, end: 20050301
  2. ZOMETA [Suspect]
     Dosage: 4 MG, QMO
     Route: 042
     Dates: start: 20040701, end: 20041201
  3. CHEMOTHERAPEUTICS,OTHER [Concomitant]
     Route: 065
     Dates: end: 20041101
  4. PHYSIOTHERAPY [Concomitant]
     Route: 065

REACTIONS (5)
  - DEATH [None]
  - DIFFICULTY IN WALKING [None]
  - DYSPNOEA [None]
  - INTERSTITIAL LUNG DISEASE [None]
  - RESPIRATORY FAILURE [None]
